FAERS Safety Report 5353203-6 (Version None)
Quarter: 2007Q2

REPORT INFORMATION
  Report Type: 
  Country: None (occurrence: None)
  Receive Date: 20070608
  Receipt Date: 20070525
  Transmission Date: 20071010
  Serious: Yes (Hospitalization)
  Sender: FDA-Public Use
  Company Number: 2007BI009864

PATIENT
  Age: 45 Year
  Sex: Female

DRUGS (10)
  1. NATALIZUMAB [Suspect]
     Indication: MULTIPLE SCLEROSIS
     Dosage: 300 MG;QM;IV
     Route: 042
     Dates: start: 20041216
  2. NATALIZUMAB [Suspect]
     Indication: MULTIPLE SCLEROSIS
     Dosage: 300 MG;QM;IV
     Route: 042
     Dates: start: 20070426
  3. NATALIZUMAB [Suspect]
     Indication: MULTIPLE SCLEROSIS
     Dosage: 300 MG;QM;IV
     Route: 042
     Dates: start: 20060914, end: 20070101
  4. DETROL LA [Concomitant]
  5. ZOLOFT [Concomitant]
  6. BACLOFEN [Concomitant]
  7. TEMAZEPAM [Concomitant]
  8. ASPIRIN [Concomitant]
  9. ANTACID TAB [Concomitant]
  10. ADDERALL 10 [Concomitant]

REACTIONS (4)
  - DIARRHOEA [None]
  - DISTURBANCE IN ATTENTION [None]
  - NAUSEA [None]
  - PAIN [None]
